FAERS Safety Report 21671464 (Version 10)
Quarter: 2023Q2

REPORT INFORMATION
  Report Type: Other
  Country: US (occurrence: US)
  Receive Date: 20221202
  Receipt Date: 20230406
  Transmission Date: 20230722
  Serious: Yes (Hospitalization)
  Sender: FDA-Public Use
  Company Number: US-GBT-015692

PATIENT
  Sex: Female

DRUGS (8)
  1. OXBRYTA [Suspect]
     Active Substance: VOXELOTOR
     Indication: Sickle cell disease
     Route: 048
     Dates: start: 202208, end: 202209
  2. OXBRYTA [Suspect]
     Active Substance: VOXELOTOR
     Indication: Sickle cell disease
     Dosage: LOWER DOSE
     Route: 048
     Dates: start: 20220901
  3. OXBRYTA [Suspect]
     Active Substance: VOXELOTOR
     Indication: Sickle cell disease
     Route: 048
  4. POTASSIUM [Concomitant]
     Active Substance: POTASSIUM
  5. ANAGRELIDE [Concomitant]
     Active Substance: ANAGRELIDE
  6. FOLIC ACID [Concomitant]
     Active Substance: FOLIC ACID
  7. LASIX [Concomitant]
     Active Substance: FUROSEMIDE
  8. XARELTO [Concomitant]
     Active Substance: RIVAROXABAN

REACTIONS (14)
  - Sickle cell anaemia with crisis [Unknown]
  - Rash vesicular [Not Recovered/Not Resolved]
  - Glossodynia [Recovered/Resolved]
  - Herpes zoster [Not Recovered/Not Resolved]
  - Ear pain [Recovered/Resolved]
  - Pharyngeal swelling [Recovered/Resolved]
  - Gingival pruritus [Recovered/Resolved]
  - Swollen tongue [Recovered/Resolved]
  - Abdominal distension [Recovered/Resolved]
  - Therapy interrupted [Unknown]
  - Haemoglobin decreased [Unknown]
  - Sickle cell anaemia with crisis [Recovered/Resolved]
  - Sickle cell anaemia with crisis [Recovered/Resolved]
  - Off label use [Unknown]

NARRATIVE: CASE EVENT DATE: 20220101
